FAERS Safety Report 21286629 (Version 2)
Quarter: 2022Q3

REPORT INFORMATION
  Report Type: Spontaneous
  Country: JP (occurrence: JP)
  Receive Date: 20220902
  Receipt Date: 20220908
  Transmission Date: 20221027
  Serious: Yes (Death, Other)
  Sender: FDA-Public Use
  Company Number: JP-CHUGAI-2022033133AA

PATIENT
  Age: 66 Year
  Sex: Female

DRUGS (3)
  1. GAZYVA [Suspect]
     Active Substance: OBINUTUZUMAB
     Indication: Lymphoma
     Dosage: UNK
     Route: 041
     Dates: start: 202104, end: 202108
  2. GAZYVA [Suspect]
     Active Substance: OBINUTUZUMAB
     Route: 041
     Dates: start: 202111, end: 202203
  3. BENDAMUSTINE HYDROCHLORIDE [Concomitant]
     Active Substance: BENDAMUSTINE HYDROCHLORIDE
     Indication: Lymphoma
     Dosage: UNK
     Route: 041

REACTIONS (3)
  - COVID-19 [Recovering/Resolving]
  - Interstitial lung disease [Fatal]
  - Disease progression [Unknown]

NARRATIVE: CASE EVENT DATE: 20220101
